FAERS Safety Report 19432980 (Version 1)
Quarter: 2021Q2

REPORT INFORMATION
  Report Type: Spontaneous
  Country: US (occurrence: US)
  Receive Date: 20210617
  Receipt Date: 20210617
  Transmission Date: 20210717
  Serious: Yes (Other)
  Sender: FDA-Public Use
  Company Number: US-SHIRE-US201921676

PATIENT
  Age: 6 Year
  Sex: Male

DRUGS (4)
  1. COAGULATION FACTOR VIIA (RECOMBINANT) [Suspect]
     Active Substance: COAGULATION FACTOR VIIA RECOMBINANT HUMAN
     Indication: HAEMORRHAGE
     Dosage: 120 MICROGRAM/KILOGRAM, Q6HR
     Route: 065
  2. FACTOR VIII INHIBITOR BYPASSING FRACTION [Suspect]
     Active Substance: ANTI-INHIBITOR COAGULANT COMPLEX
     Indication: PRODUCT USED FOR UNKNOWN INDICATION
     Dosage: UNK
     Route: 065
  3. HUMAN PROTHROMBIN COMPLEX TOTAL [COAGULATION FACTOR IX HUMAN\COAGULATION FACTOR VII HUMAN\COAGULATION FACTOR X HUMAN\PROTEIN C\PROTHROMBIN] [Suspect]
     Active Substance: COAGULATION FACTOR IX HUMAN\COAGULATION FACTOR VII HUMAN\COAGULATION FACTOR X HUMAN\PROTEIN C\PROTHROMBIN
     Dosage: 85 INTERNATIONAL UNIT/KILOGRAM
     Route: 065
  4. HUMAN PROTHROMBIN COMPLEX TOTAL [COAGULATION FACTOR IX HUMAN\COAGULATION FACTOR VII HUMAN\COAGULATION FACTOR X HUMAN\PROTEIN C\PROTHROMBIN] [Suspect]
     Active Substance: COAGULATION FACTOR IX HUMAN\COAGULATION FACTOR VII HUMAN\COAGULATION FACTOR X HUMAN\PROTEIN C\PROTHROMBIN
     Indication: PROPHYLAXIS
     Dosage: 100 INTERNATIONAL UNIT/KILOGRAM
     Route: 065

REACTIONS (1)
  - Atrial thrombosis [Recovering/Resolving]
